FAERS Safety Report 5289719-0 (Version None)
Quarter: 2007Q2

REPORT INFORMATION
  Report Type: 
  Country: None (occurrence: None)
  Receive Date: 20070406
  Receipt Date: 20070327
  Transmission Date: 20071010
  Serious: Yes (Hospitalization)
  Sender: FDA-Public Use
  Company Number: US-AMGEN-STX214973

PATIENT
  Sex: Male
  Weight: 98.5 kg

DRUGS (8)
  1. ENBREL [Suspect]
     Indication: ANKYLOSING SPONDYLITIS
     Route: 058
     Dates: start: 20050606, end: 20070228
  2. NORVASC [Concomitant]
  3. ATENOLOL [Concomitant]
  4. DIOVAN [Concomitant]
  5. TYLENOL [Concomitant]
  6. ENOXAPARIN SODIUM [Concomitant]
     Route: 058
  7. DICLOFENAC SODIUM [Concomitant]
  8. INFLUENZA VACCINE [Concomitant]
     Dates: start: 20061126

REACTIONS (1)
  - GUILLAIN-BARRE SYNDROME [None]
